FAERS Safety Report 10296537 (Version 1)
Quarter: 2014Q3

REPORT INFORMATION
  Report Type: Spontaneous
  Country: DE (occurrence: DE)
  Receive Date: 20140710
  Receipt Date: 20140710
  Transmission Date: 20150326
  Serious: Yes (Congenital Anomaly, Other)
  Sender: FDA-Public Use
  Company Number: DE-ABBVIE-14P-062-1256140-00

PATIENT

DRUGS (1)
  1. VALPROATE SODIUM. [Suspect]
     Active Substance: VALPROATE SODIUM
     Indication: MATERNAL EXPOSURE TIMING UNSPECIFIED
     Route: 064

REACTIONS (6)
  - Foetal anticonvulsant syndrome [Unknown]
  - Skull malformation [Unknown]
  - Cognitive disorder [Recovering/Resolving]
  - Motor developmental delay [Recovering/Resolving]
  - Foetal exposure during pregnancy [Unknown]
  - Speech disorder developmental [Recovering/Resolving]
